FAERS Safety Report 4323522-0 (Version None)
Quarter: 2004Q1

REPORT INFORMATION
  Report Type: 
  Country: None (occurrence: None)
  Receive Date: 20040324
  Receipt Date: 20040324
  Transmission Date: 20041129
  Serious: Yes (Other)
  Sender: FDA-Public Use
  Company Number: None

PATIENT
  Age: 38 Year
  Sex: Male
  Weight: 81.6475 kg

DRUGS (9)
  1. EFFEXOR XR [Suspect]
     Indication: DEPRESSION
     Dosage: 27.8 MG DAILY ORAL
     Route: 048
     Dates: start: 20040211, end: 20040211
  2. ACCUPRIL [Concomitant]
  3. LEXAPRO [Concomitant]
  4. LIPITOR [Concomitant]
  5. XANAX [Concomitant]
  6. ZYPREXA [Concomitant]
  7. MOTRIN [Concomitant]
  8. DARVOCET-N 100 [Concomitant]
  9. IMITREX [Concomitant]

REACTIONS (1)
  - RASH [None]
